FAERS Safety Report 6444421-4 (Version None)
Quarter: 2009Q4

REPORT INFORMATION
  Report Type: 
  Country: None (occurrence: None)
  Receive Date: 20091110
  Receipt Date: 20090723
  Transmission Date: 20100525
  Serious: Yes (Hospitalization)
  Sender: FDA-Public Use
  Company Number: 1000007710

PATIENT
  Sex: Female

DRUGS (3)
  1. SAVELLA [Suspect]
     Dosage: ORAL
     Route: 048
  2. CELEXA [Concomitant]
  3. PAIN MEDICATION (NOS) [Concomitant]

REACTIONS (1)
  - SEROTONIN SYNDROME [None]
